FAERS Safety Report 22245825 (Version 1)
Quarter: 2023Q2

REPORT INFORMATION
  Report Type: Spontaneous
  Country: US (occurrence: US)
  Receive Date: 20230424
  Receipt Date: 20230424
  Transmission Date: 20230721
  Serious: No
  Sender: FDA-Public Use
  Company Number: US-drreddys-SPO/USA/23/0163664

PATIENT
  Age: 13 Year
  Sex: Male

DRUGS (2)
  1. ZENATANE [Suspect]
     Active Substance: ISOTRETINOIN
     Indication: Product used for unknown indication
     Dosage: RMA ISSUE DATE: 22 NOVEMBER 2022 09:47:19 AM
  2. ZENATANE [Suspect]
     Active Substance: ISOTRETINOIN
     Dosage: RMA ISSUE DATE: 01 MARCH 2023 09:42:31 AM, 25 JANUARY 2023 09:12:08 AM, 21 DECEMBER 2022 10:03:54 AM

REACTIONS (1)
  - Arthralgia [Unknown]
